FAERS Safety Report 5509687-3 (Version None)
Quarter: 2007Q4

REPORT INFORMATION
  Report Type: 
  Country: None (occurrence: None)
  Receive Date: 20071107
  Receipt Date: 20071107
  Transmission Date: 20080405
  Serious: Yes (Hospitalization)
  Sender: FDA-Public Use
  Company Number: None

PATIENT
  Age: 61 Year
  Sex: Female
  Weight: 89.3586 kg

DRUGS (17)
  1. ETODOLAC [Suspect]
     Indication: PAIN
     Dosage: 300 MG BID PRN PO
     Route: 048
     Dates: start: 20030506, end: 20070314
  2. ASPIRIN [Suspect]
     Indication: CARDIOVASCULAR DISORDER
     Dosage: 325 MG DAILY PO
     Route: 048
     Dates: start: 19930722, end: 20070108
  3. ACETAMINOPHEN [Concomitant]
  4. CALCIUM/VITAMIN D [Concomitant]
  5. CARBAMAZEPINE [Concomitant]
  6. CLOTRIMAZOLE [Concomitant]
  7. CYANCOBALAMIN [Concomitant]
  8. DOCUSATE [Concomitant]
  9. ESTROGENS, CONJUGATED [Concomitant]
  10. FERROUS SULFATE TAB [Concomitant]
  11. FLUOXETINE [Concomitant]
  12. FOLIC ACID [Concomitant]
  13. HYDROCHLOROTHIAZIDE [Concomitant]
  14. LISINOPRIL [Concomitant]
  15. LORATADINE [Concomitant]
  16. LOVASTATIN [Concomitant]
  17. TRAZODONE HCL [Concomitant]

REACTIONS (8)
  - ABDOMINAL PAIN LOWER [None]
  - ASTHENIA [None]
  - COLITIS ISCHAEMIC [None]
  - COLON CANCER [None]
  - CROHN'S DISEASE [None]
  - DIVERTICULITIS [None]
  - LOWER GASTROINTESTINAL HAEMORRHAGE [None]
  - NAUSEA [None]
